FAERS Safety Report 9525415 (Version 1)
Quarter: 2013Q3

REPORT INFORMATION
  Report Type: Spontaneous
  Country: US (occurrence: None)
  Receive Date: 20130912
  Receipt Date: 20130912
  Transmission Date: 20140515
  Serious: No
  Sender: FDA-Public Use
  Company Number: IDR-00630

PATIENT
  Age: 60 Year
  Sex: Female

DRUGS (4)
  1. PROPRANOLOL [Suspect]
     Indication: MIGRAINE
  2. PROPRANOLOL [Suspect]
     Indication: HEART RATE IRREGULAR
  3. ESTROGEN [Concomitant]
  4. SYNTHROID (LEVOTHYROXINE SODIUM) [Concomitant]

REACTIONS (3)
  - Heart rate irregular [None]
  - Product substitution issue [None]
  - Feeling abnormal [None]
